FAERS Safety Report 7876336-9 (Version None)
Quarter: 2011Q4

REPORT INFORMATION
  Report Type: 
  Country: None (occurrence: None)
  Receive Date: 20111031
  Receipt Date: 20111021
  Transmission Date: 20120403
  Serious: Yes (Hospitalization)
  Sender: FDA-Public Use
  Company Number: JP-MERCK-1103USA01962

PATIENT
  Age: 73 Year
  Sex: Male
  Weight: 60 kg

DRUGS (2)
  1. COZAAR [Suspect]
     Indication: HYPERTENSION
     Dosage: DIVIDED DOSE FREQUENCY UNKNOWN
     Route: 048
     Dates: start: 20081118
  2. NORVASC [Concomitant]
     Indication: HYPERTENSION
     Dosage: TEN YEARS AGO, THE DIVIDED DOSE FREQUENCY UNKNOWN
     Route: 048

REACTIONS (1)
  - HYPOGLYCAEMIA [None]
